FAERS Safety Report 20291540 (Version 5)
Quarter: 2022Q1

REPORT INFORMATION
  Report Type: Spontaneous
  Country: CA (occurrence: CA)
  Receive Date: 20220104
  Receipt Date: 20220321
  Transmission Date: 20220423
  Serious: Yes (Other)
  Sender: FDA-Public Use
  Company Number: CA-PFIZER INC-2021899834

PATIENT
  Age: 44 Year
  Sex: Female

DRUGS (10)
  1. XELJANZ [Suspect]
     Active Substance: TOFACITINIB CITRATE
     Indication: Crohn^s disease
     Dosage: 10 MG, 2X/DAY (INDUCTION FOR 8 WEEKS)
     Route: 048
     Dates: start: 20210714
  2. XELJANZ [Suspect]
     Active Substance: TOFACITINIB CITRATE
     Dosage: 10 MG, 2X/DAY INDUCTION FOR 8 WEEKS AND 5 MG, 2X/DAY FOR MAINTENANCE
     Route: 048
     Dates: start: 20210720
  3. CHOLESTYRAMINE [Concomitant]
     Active Substance: CHOLESTYRAMINE
     Dosage: 1 DF
  4. DIETARY SUPPLEMENT [Concomitant]
     Active Substance: DIETARY SUPPLEMENT
     Indication: Liver disorder
     Dosage: UNK
     Route: 065
  5. ENTYVIO [Concomitant]
     Active Substance: VEDOLIZUMAB
     Dosage: 1 DF, CYCLIC (EVERY 4 WEEKS)
     Dates: start: 202008
  6. MONOFERRIC [Concomitant]
     Active Substance: FERRIC DERISOMALTOSE
     Dosage: 1 DF
     Route: 042
     Dates: start: 2016
  7. PREDNISONE [Concomitant]
     Active Substance: PREDNISONE
     Dosage: 1 DF
     Route: 065
     Dates: start: 20210609
  8. URSODIOL [Concomitant]
     Active Substance: URSODIOL
     Dosage: 1 DF
     Route: 065
  9. VITAMIN D NOS [Concomitant]
     Active Substance: VITAMIN D NOS
     Dosage: 1 DF
     Route: 065
  10. WARFARIN [Concomitant]
     Active Substance: WARFARIN
     Dosage: 1 DF
     Route: 065
     Dates: start: 2013

REACTIONS (20)
  - Laparotomy [Unknown]
  - Ileostomy [Unknown]
  - Colectomy [Unknown]
  - Condition aggravated [Unknown]
  - Haematochezia [Unknown]
  - Intestinal anastomosis [Unknown]
  - Bowel movement irregularity [Unknown]
  - Nausea [Not Recovered/Not Resolved]
  - Vomiting [Not Recovered/Not Resolved]
  - Fatigue [Unknown]
  - Arthritis [Unknown]
  - Serum ferritin increased [Unknown]
  - Blood alkaline phosphatase increased [Unknown]
  - Gamma-glutamyltransferase increased [Unknown]
  - Aspartate aminotransferase increased [Unknown]
  - Alanine aminotransferase increased [Unknown]
  - Red blood cell sedimentation rate increased [Unknown]
  - Platelet count increased [Unknown]
  - Faecal calprotectin increased [Unknown]
  - Diarrhoea [Unknown]

NARRATIVE: CASE EVENT DATE: 20211001
